FAERS Safety Report 21291393 (Version 6)
Quarter: 2024Q2

REPORT INFORMATION
  Report Type: Report from Study
  Country: CO (occurrence: CO)
  Receive Date: 20220903
  Receipt Date: 20240506
  Transmission Date: 20240716
  Serious: Yes (Hospitalization)
  Sender: FDA-Public Use
  Company Number: CO-NOVARTISPH-NVSC2022CO198507

PATIENT
  Age: 21 Year
  Sex: Male
  Weight: 64 kg

DRUGS (2)
  1. ELTROMBOPAG OLAMINE [Suspect]
     Active Substance: ELTROMBOPAG OLAMINE
     Indication: Aplastic anaemia
     Dosage: 100 MG, QD
     Route: 048
  2. ELTROMBOPAG OLAMINE [Suspect]
     Active Substance: ELTROMBOPAG OLAMINE
     Dosage: 25 MG, QD (ONCE DAILY/ DAILY)
     Route: 048
     Dates: start: 20211029, end: 202401

REACTIONS (10)
  - Hepatitis [Unknown]
  - Pneumonia [Unknown]
  - Cough [Unknown]
  - Blood glucose abnormal [Unknown]
  - Swelling [Unknown]
  - Hepatic pain [Unknown]
  - Blood glucose increased [Unknown]
  - Blood glucose decreased [Unknown]
  - Liver disorder [Unknown]
  - Abdominal pain upper [Unknown]

NARRATIVE: CASE EVENT DATE: 20230301
